FAERS Safety Report 14828972 (Version 1)
Quarter: 2018Q2

REPORT INFORMATION
  Report Type: Report from Study
  Country: CA (occurrence: CA)
  Receive Date: 20180430
  Receipt Date: 20180430
  Transmission Date: 20180711
  Serious: No
  Sender: FDA-Public Use
  Company Number: CA-JNJFOC-20180433970

PATIENT
  Age: 52 Year
  Sex: Male
  Weight: 91 kg

DRUGS (2)
  1. METHOTREXATE. [Concomitant]
     Active Substance: METHOTREXATE
     Route: 065
  2. STELARA [Suspect]
     Active Substance: USTEKINUMAB
     Indication: PSORIATIC ARTHROPATHY
     Dosage: STRENGTH = 90 MG
     Route: 058
     Dates: start: 20150915

REACTIONS (3)
  - Off label use [Unknown]
  - Hepatic enzyme increased [Unknown]
  - Incorrect dose administered [Unknown]

NARRATIVE: CASE EVENT DATE: 20150915
